FAERS Safety Report 24287284 (Version 1)
Quarter: 2024Q3

REPORT INFORMATION
  Report Type: Spontaneous
  Country: US (occurrence: None)
  Receive Date: 20240904
  Receipt Date: 20240904
  Transmission Date: 20241017
  Serious: No
  Sender: Public
  Company Number: None

PATIENT
  Age: 69 Year
  Sex: Female

DRUGS (15)
  1. CAPECITABINE [Suspect]
     Active Substance: CAPECITABINE
     Indication: Breast cancer
     Dosage: FREQUENCY : TWICE A DAY;?
     Route: 048
     Dates: start: 2017
  2. ESOMEPRAZOLE MAGNESIUM 20MG [Concomitant]
  3. LYSINE [Concomitant]
     Active Substance: LYSINE
  4. LEVOTHYROXINE [Concomitant]
     Active Substance: LEVOTHYROXINE\LEVOTHYROXINE SODIUM
  5. PROBIOTIC ADULT [Concomitant]
  6. DOCUSATE SOD [Concomitant]
  7. SENNA 8.6 MG [Concomitant]
  8. DEXAMETHASONE [Concomitant]
     Active Substance: DEXAMETHASONE
  9. MONTELUKAST [Concomitant]
     Active Substance: MONTELUKAST SODIUM
  10. FLUTICASONE/SALM [Concomitant]
  11. VALACYCLOVIR [Concomitant]
     Active Substance: VALACYCLOVIR HYDROCHLORIDE
  12. MIRALAX 3350 NF POWDER [Concomitant]
  13. PRESERVISION AREDS 2 CAPSULES [Concomitant]
  14. BUPROPION [Concomitant]
     Active Substance: BUPROPION
  15. VITAMIN B-COMPLEX TABLETS [Concomitant]

REACTIONS (2)
  - Asthma [None]
  - Inappropriate schedule of product administration [None]

NARRATIVE: CASE EVENT DATE: 20240801
